FAERS Safety Report 7938925-2 (Version None)
Quarter: 2011Q4

REPORT INFORMATION
  Report Type: 
  Country: None (occurrence: None)
  Receive Date: 20111124
  Receipt Date: 20111116
  Transmission Date: 20120403
  Serious: Yes (Hospitalization)
  Sender: FDA-Public Use
  Company Number: US-BRISTOL-MYERS SQUIBB COMPANY-16234759

PATIENT
  Age: 72 Year
  Sex: Female
  Weight: 68 kg

DRUGS (1)
  1. COUMADIN [Suspect]
     Indication: PROTEIN C DEFICIENCY
     Dosage: TEN YEARS PRIOR

REACTIONS (6)
  - GAIT DISTURBANCE [None]
  - RASH [None]
  - BALANCE DISORDER [None]
  - SPEECH DISORDER [None]
  - ASTHENIA [None]
  - DEHYDRATION [None]
